FAERS Safety Report 16612636 (Version 1)
Quarter: 2019Q3

REPORT INFORMATION
  Report Type: Spontaneous
  Country: US (occurrence: US)
  Receive Date: 20190722
  Receipt Date: 20190722
  Transmission Date: 20191004
  Serious: Yes (Disabling, Other)
  Sender: FDA-Public Use
  Company Number: None

PATIENT
  Age: 79 Year
  Sex: Female
  Weight: 55.35 kg

DRUGS (12)
  1. MAGNESIUM [Concomitant]
     Active Substance: MAGNESIUM
  2. COQ10 [Concomitant]
     Active Substance: UBIDECARENONE
  3. NATUR-THROID [Concomitant]
  4. EYLEA [Concomitant]
     Active Substance: AFLIBERCEPT
  5. GABAPENTIN. [Concomitant]
     Active Substance: GABAPENTIN
  6. RHEUMATE [Concomitant]
     Active Substance: LEVOMEFOLIC ACID\METHYLCOBALAMIN\TURMERIC
  7. LUXEVITE VISION [Concomitant]
  8. VITAMIN D [Concomitant]
     Active Substance: VITAMIN D NOS
  9. ASHWAGANDHA [Concomitant]
     Active Substance: HERBALS
  10. OMEGA 3 [Concomitant]
     Active Substance: OMEGA-3 FATTY ACIDS
  11. DULOXETINE. [Suspect]
     Active Substance: DULOXETINE
     Indication: FIBROMYALGIA
     Route: 048
     Dates: start: 20190701, end: 20190718
  12. ALPHA LIPOIC ACID [Concomitant]
     Active Substance: .ALPHA.-LIPOIC ACID

REACTIONS (11)
  - Apathy [None]
  - Fatigue [None]
  - Visual impairment [None]
  - Abdominal discomfort [None]
  - Weight decreased [None]
  - Abdominal distension [None]
  - Suicidal ideation [None]
  - Depression [None]
  - Decreased appetite [None]
  - Intraocular pressure increased [None]
  - Asthenia [None]

NARRATIVE: CASE EVENT DATE: 20190701
